FAERS Safety Report 26205055 (Version 1)
Quarter: 2025Q4

REPORT INFORMATION
  Report Type: Report from Study
  Country: EU (occurrence: EU)
  Receive Date: 20251227
  Receipt Date: 20251227
  Transmission Date: 20260118
  Serious: Yes (Other)
  Sender: TEVA
  Company Number: None

PATIENT
  Age: 53 Year
  Sex: Female
  Weight: 54 kg

DRUGS (40)
  1. CAPECITABINE [Suspect]
     Active Substance: CAPECITABINE
     Indication: HER2 positive breast cancer
     Dosage: 2000 MG,Q3W
     Route: 048
     Dates: start: 20190530, end: 20191125
  2. MORPHINE [Concomitant]
     Active Substance: MORPHINE
     Indication: Product used for unknown indication
     Route: 065
  3. MORPHINE [Concomitant]
     Active Substance: MORPHINE
     Indication: Product used for unknown indication
     Dosage: 200 MG (200 MG 200 MG, Q3W
     Route: 050
     Dates: start: 20180830, end: 201811
  4. MORPHINE [Concomitant]
     Active Substance: MORPHINE
     Indication: Product used for unknown indication
     Dosage: UNK
     Route: 065
  5. NAVELBINE [Suspect]
     Active Substance: VINORELBINE TARTRATE
     Indication: Product used for unknown indication
     Route: 042
     Dates: start: 20200218, end: 20201009
  6. VANCOMYCIN [Concomitant]
     Active Substance: VANCOMYCIN
     Indication: Gastrointestinal bacterial infection
     Route: 048
     Dates: start: 20200512, end: 20200528
  7. FENTANYL CITRATE [Concomitant]
     Active Substance: FENTANYL CITRATE
     Indication: Product used for unknown indication
     Route: 065
  8. MANNITOL [Concomitant]
     Active Substance: MANNITOL
     Indication: Product used for unknown indication
     Dosage: 250 MG
     Route: 042
     Dates: start: 20200421, end: 20200508
  9. MANNITOL [Concomitant]
     Active Substance: MANNITOL
     Indication: Product used for unknown indication
     Dosage: 6 MG/KG, Q3W
     Route: 042
     Dates: start: 20170824, end: 20180808
  10. HERCEPTIN [Suspect]
     Active Substance: TRASTUZUMAB
     Indication: HER2 positive breast cancer
     Dosage: 25 MG/M2, TIW, INTRAVENOUS USE
     Route: 065
     Dates: start: 20200218, end: 20201009
  11. RINGERS SOLUTION [Concomitant]
     Active Substance: CALCIUM CHLORIDE\POTASSIUM CHLORIDE\SODIUM CHLORIDE
     Indication: Paraparesis
     Route: 042
     Dates: start: 20200421, end: 20200508
  12. METRONIDAZOLE [Concomitant]
     Active Substance: METRONIDAZOLE
     Indication: Gastrointestinal bacterial infection
     Route: 048
     Dates: start: 20200512, end: 20200518
  13. TAXOTERE [Suspect]
     Active Substance: DOCETAXEL
     Indication: HER2 positive breast cancer
     Dosage: 120.000MG TIW
     Route: 042
     Dates: start: 20181219, end: 20190503
  14. TAXOTERE [Suspect]
     Active Substance: DOCETAXEL
     Indication: HER2 positive breast cancer
     Dosage: 75 MG/M2,Q3W (MOST DOSE PRIOR TO EVENT 19 DEC 2018)
     Route: 042
     Dates: start: 20170804, end: 201711
  15. FAMOTIDINE [Concomitant]
     Active Substance: FAMOTIDINE
     Indication: Gastrointestinal bacterial infection
     Dosage: 40 MG, QD
     Route: 042
     Dates: start: 20200512, end: 20200528
  16. GOSERELIN [Suspect]
     Active Substance: GOSERELIN
     Indication: HER2 positive breast cancer
     Route: 058
     Dates: start: 201610, end: 201706
  17. GOSERELIN [Suspect]
     Active Substance: GOSERELIN
     Indication: HER2 positive breast cancer
     Dosage: 6 MG/KG, Q3W
     Route: 065
     Dates: start: 20201208
  18. TYKERB [Suspect]
     Active Substance: LAPATINIB DITOSYLATE
     Indication: HER2 positive breast cancer
     Dosage: 1250 MG, QD
     Route: 048
     Dates: start: 20191125, end: 20191125
  19. GENTAMICIN [Concomitant]
     Active Substance: GENTAMICIN
     Indication: Product used for unknown indication
     Dosage: 420 MG, Q3W
     Route: 050
     Dates: start: 20170824, end: 20180808
  20. KADCYLA [Suspect]
     Active Substance: ADO-TRASTUZUMAB EMTANSINE
     Indication: HER2 positive breast cancer
     Dosage: 8 MG/KG, QD, INTRAVENOUS USE
     Route: 065
     Dates: start: 20170804, end: 20170804
  21. NOLVADEX [Suspect]
     Active Substance: TAMOXIFEN CITRATE
     Indication: HER2 positive breast cancer
     Dosage: 20 MG, QD
     Route: 048
     Dates: start: 201610, end: 201706
  22. XGEVA [Suspect]
     Active Substance: DENOSUMAB
     Indication: HER2 positive breast cancer
     Dosage: 120 MG, Q4W
     Route: 058
     Dates: start: 20181219
  23. PERJETA [Suspect]
     Active Substance: PERTUZUMAB
     Indication: HER2 positive breast cancer
     Dosage: 600 MG, Q3W
     Route: 042
     Dates: start: 20181219, end: 20191111
  24. HERCEPTIN [Suspect]
     Active Substance: TRASTUZUMAB
     Indication: HER2 positive breast cancer
     Dosage: 600.000MG TIW
     Route: 042
     Dates: start: 20181219, end: 20191111
  25. HERCEPTIN [Suspect]
     Active Substance: TRASTUZUMAB
     Indication: HER2 positive breast cancer
     Dosage: 6.000MG/KG TIW
     Route: 042
     Dates: start: 20170824, end: 20180808
  26. HERCEPTIN [Suspect]
     Active Substance: TRASTUZUMAB
     Indication: HER2 positive breast cancer
     Dosage: 6.000MG/KG TIW
     Route: 042
     Dates: start: 20200218, end: 20201009
  27. HERCEPTIN [Suspect]
     Active Substance: TRASTUZUMAB
     Indication: HER2 positive breast cancer
     Dosage: 8.000MG/KG QD
     Route: 042
     Dates: start: 20170804, end: 20170804
  28. XGEVA [Concomitant]
     Active Substance: DENOSUMAB
     Indication: Metastases to spine
     Route: 058
     Dates: start: 201808, end: 20201009
  29. PERJETA [Suspect]
     Active Substance: PERTUZUMAB
     Indication: HER2 positive breast cancer
     Dosage: 420.000MG TIW
     Route: 042
     Dates: start: 20170824, end: 20180808
  30. PERJETA [Suspect]
     Active Substance: PERTUZUMAB
     Indication: HER2 positive breast cancer
     Dosage: 420.000MG TIW
     Route: 042
     Dates: start: 20190404, end: 20190624
  31. PERJETA [Suspect]
     Active Substance: PERTUZUMAB
     Indication: HER2 positive breast cancer
     Dosage: 840.000MG QD
     Route: 042
     Dates: start: 20170804, end: 20170804
  32. METRONIDAZOLE [Concomitant]
     Active Substance: METRONIDAZOLE
     Indication: Product used for unknown indication
     Dosage: 250 MG
     Route: 050
     Dates: start: 20200421, end: 20200508
  33. PERTUZUMAB [Suspect]
     Active Substance: PERTUZUMAB
     Indication: HER2 positive breast cancer
     Dosage: 840 MG, QD, INTRAVENOUS USE
     Route: 065
     Dates: start: 20170804, end: 20170804
  34. RINGERS SOLUTION [Concomitant]
     Active Substance: CALCIUM CHLORIDE\POTASSIUM CHLORIDE\SODIUM CHLORIDE
     Indication: Product used for unknown indication
     Dosage: 840 MG, QD
     Route: 050
     Dates: start: 20170804, end: 20170804
  35. VANCOMYCIN [Concomitant]
     Active Substance: VANCOMYCIN
     Indication: Product used for unknown indication
     Dosage: 3.6 MG, Q4W
     Route: 050
     Dates: start: 201610, end: 201706
  36. VINORELBINE TARTRATE [Suspect]
     Active Substance: VINORELBINE TARTRATE
     Indication: Product used for unknown indication
     Dosage: 75 MG/M2, TIW, INTRAVENOUS USE
     Route: 065
     Dates: start: 20170804, end: 201711
  37. ADO-TRASTUZUMAB EMTANSINE [Suspect]
     Active Substance: ADO-TRASTUZUMAB EMTANSINE
     Indication: HER2 positive breast cancer
     Dosage: 200 MG, INTRAVENOUS USE
     Route: 065
     Dates: start: 20180830, end: 201811
  38. KADCYLA [Suspect]
     Active Substance: ADO-TRASTUZUMAB EMTANSINE
     Indication: HER2 positive breast cancer
     Dosage: 200 MG TIW
     Route: 042
     Dates: start: 20180830, end: 201811
  39. GENTAMICIN [Concomitant]
     Active Substance: GENTAMICIN
     Indication: Paraparesis
     Route: 042
     Dates: start: 20200421, end: 20200508
  40. XGEVA [Concomitant]
     Active Substance: DENOSUMAB
     Indication: Product used for unknown indication
     Dosage: 40 MG, QD
     Route: 050
     Dates: start: 20200512, end: 20200528

REACTIONS (4)
  - Gastrointestinal bacterial infection [Recovered/Resolved]
  - Compression fracture [Recovered/Resolved]
  - Pelvic pain [Not Recovered/Not Resolved]
  - Paraparesis [Recovered/Resolved]

NARRATIVE: CASE EVENT DATE: 20191201
